FAERS Safety Report 10789391 (Version 1)
Quarter: 2015Q1

REPORT INFORMATION
  Report Type: Spontaneous
  Country: US (occurrence: US)
  Receive Date: 20150212
  Receipt Date: 20150212
  Transmission Date: 20150721
  Serious: No
  Sender: FDA-Public Use
  Company Number: US-GLAXOSMITHKLINE-A1080406A

PATIENT

DRUGS (7)
  1. LORATADINE. [Concomitant]
     Active Substance: LORATADINE
  2. ACETAMINOPHEN. [Concomitant]
     Active Substance: ACETAMINOPHEN
  3. FLOVENT [Suspect]
     Active Substance: FLUTICASONE PROPIONATE
     Indication: PRODUCT USED FOR UNKNOWN INDICATION
     Dosage: 110 MCG
     Route: 065
     Dates: start: 20140618, end: 2014
  4. LOVASTATIN. [Concomitant]
     Active Substance: LOVASTATIN
  5. ALBUTEROL. [Concomitant]
     Active Substance: ALBUTEROL
  6. DICLOFENAC [Concomitant]
     Active Substance: DICLOFENAC
  7. FINASTERIDE. [Concomitant]
     Active Substance: FINASTERIDE

REACTIONS (2)
  - Drug ineffective [Not Recovered/Not Resolved]
  - Inhalation therapy [Not Recovered/Not Resolved]

NARRATIVE: CASE EVENT DATE: 2014
